FAERS Safety Report 5187166-3 (Version None)
Quarter: 2006Q4

REPORT INFORMATION
  Report Type: 
  Country: None (occurrence: None)
  Receive Date: 20061220
  Receipt Date: 20060925
  Transmission Date: 20070319
  Serious: No
  Sender: FDA-Public Use
  Company Number: US-AMGEN-US194834

PATIENT
  Sex: Female

DRUGS (2)
  1. ENBREL [Suspect]
     Indication: PSORIATIC ARTHROPATHY
     Route: 058
     Dates: start: 20060601
  2. SULFASALAZINE [Concomitant]
     Route: 048
     Dates: start: 20050601

REACTIONS (2)
  - ARTHRITIS [None]
  - HEPATIC ENZYME INCREASED [None]
